FAERS Safety Report 11765617 (Version 1)
Quarter: 2015Q4

REPORT INFORMATION
  Report Type: Spontaneous
  Country: US (occurrence: US)
  Receive Date: 20151120
  Receipt Date: 20151120
  Transmission Date: 20160304
  Serious: No
  Sender: FDA-Public Use
  Company Number: US-ELI_LILLY_AND_COMPANY-US201406008765

PATIENT
  Sex: Female

DRUGS (3)
  1. STATIN                             /00084401/ [Concomitant]
     Dosage: 20 MG, UNK
  2. SYNTHROID [Concomitant]
     Active Substance: LEVOTHYROXINE SODIUM
  3. FORTEO [Suspect]
     Active Substance: TERIPARATIDE
     Indication: OSTEOPENIA
     Dosage: UNK UNK, QD
     Route: 065
     Dates: start: 201006, end: 201206

REACTIONS (5)
  - Jaw disorder [Unknown]
  - Off label use [Unknown]
  - Blood test abnormal [Unknown]
  - Urine analysis abnormal [Unknown]
  - Tooth disorder [Unknown]
